FAERS Safety Report 17655865 (Version 1)
Quarter: 2020Q2

REPORT INFORMATION
  Report Type: Report from Study
  Country: NO (occurrence: NO)
  Receive Date: 20200410
  Receipt Date: 20200410
  Transmission Date: 20200713
  Serious: Yes (Life-Threatening)
  Sender: FDA-Public Use
  Company Number: NO-PFIZER INC-1012136

PATIENT
  Age: 15 Year
  Sex: Female

DRUGS (7)
  1. METHOTREXATE SODIUM. [Suspect]
     Active Substance: METHOTREXATE SODIUM
     Indication: OSTEOSARCOMA
     Dosage: 12 MG/M2, CYCLIC (2 CYCLES OF PAIRED)
     Route: 041
  2. CALCIUM FOLINATE [Concomitant]
     Active Substance: LEUCOVORIN CALCIUM
     Indication: SALVAGE THERAPY
     Dosage: 8 MG/M2, UNK (EVERY SIXTH HOUR)
     Route: 041
  3. CISPLATIN. [Suspect]
     Active Substance: CISPLATIN
     Indication: OSTEOSARCOMA
     Dosage: 90 MG/M2, CYCLIC (2 CYCLES)
     Route: 041
  4. G-CSF [Concomitant]
     Active Substance: GRANULOCYTE COLONY-STIMULATING FACTOR NOS
     Indication: PRODUCT USED FOR UNKNOWN INDICATION
     Dosage: UNK (NOT REPORTED)
  5. DOXORUBICIN HCL [Suspect]
     Active Substance: DOXORUBICIN HYDROCHLORIDE
     Indication: OSTEOSARCOMA
     Dosage: 75 MG/M2, CYCLIC (2 CYCLES)
     Route: 041
  6. IFOSFAMIDE. [Suspect]
     Active Substance: IFOSFAMIDE
     Indication: OSTEOSARCOMA
     Dosage: UNK, CYCLIC (10-12 G/M^2, 3 CYCLES)
     Route: 041
  7. MESNA. [Concomitant]
     Active Substance: MESNA
     Indication: ADJUVANT THERAPY
     Dosage: UNK, DAILY (2 G/M^2/DAY)
     Route: 041

REACTIONS (1)
  - Cardiotoxicity [Not Recovered/Not Resolved]
